FAERS Safety Report 20194915 (Version 1)
Quarter: 2021Q4

REPORT INFORMATION
  Report Type: Report from Study
  Country: JP (occurrence: JP)
  Receive Date: 20211216
  Receipt Date: 20211216
  Transmission Date: 20220303
  Serious: Yes (Hospitalization, Other)
  Sender: FDA-Public Use
  Company Number: JP-CHUGAI-C2021010094ROCHE

PATIENT
  Age: 65 Year
  Sex: Male
  Weight: 46.1 kg

DRUGS (9)
  1. BEVACIZUMAB [Suspect]
     Active Substance: BEVACIZUMAB
     Indication: Non-small cell lung cancer
     Route: 041
     Dates: start: 20200218, end: 20200422
  2. BEVACIZUMAB [Suspect]
     Active Substance: BEVACIZUMAB
     Route: 041
     Dates: start: 20200518
  3. ATEZOLIZUMAB [Suspect]
     Active Substance: ATEZOLIZUMAB
     Indication: Non-small cell lung cancer
     Route: 041
     Dates: start: 20200218, end: 20200422
  4. ATEZOLIZUMAB [Suspect]
     Active Substance: ATEZOLIZUMAB
     Route: 041
     Dates: start: 20200518
  5. CARBOPLATIN [Suspect]
     Active Substance: CARBOPLATIN
     Indication: Non-small cell lung cancer
     Dosage: AUC5
     Route: 041
     Dates: start: 20200218, end: 20200422
  6. PEMETREXED [Suspect]
     Active Substance: PEMETREXED
     Indication: Non-small cell lung cancer
     Route: 041
     Dates: start: 20200218, end: 20200422
  7. PEMETREXED [Suspect]
     Active Substance: PEMETREXED
     Route: 041
     Dates: start: 20200518
  8. AMLODIPINE [Concomitant]
     Active Substance: AMLODIPINE BESYLATE
     Indication: Hypertension
  9. FAMOTIDINE [Concomitant]
     Active Substance: FAMOTIDINE
     Indication: Gastritis prophylaxis

REACTIONS (2)
  - Pneumonitis [Recovered/Resolved]
  - Metastases to peritoneum [Unknown]

NARRATIVE: CASE EVENT DATE: 20210421
